FAERS Safety Report 21311847 (Version 2)
Quarter: 2024Q3

REPORT INFORMATION
  Report Type: Spontaneous
  Country: US (occurrence: None)
  Receive Date: 20220909
  Receipt Date: 20240906
  Transmission Date: 20241017
  Serious: No
  Sender: DOMPE FARMACEUTICI
  Company Number: US-ARIS GLOBAL-202203-0561

PATIENT
  Sex: Female

DRUGS (6)
  1. OXERVATE [Suspect]
     Active Substance: CENEGERMIN-BKBJ
     Indication: Neurotrophic keratopathy
     Route: 047
     Dates: start: 20220322, end: 20220516
  2. OXERVATE [Suspect]
     Active Substance: CENEGERMIN-BKBJ
     Route: 047
     Dates: start: 20230706
  3. PREDNISONE [Concomitant]
     Active Substance: PREDNISONE
     Dosage: DOUBLE STRENGHT PK
  4. MOXIFLOXACIN [Concomitant]
     Active Substance: MOXIFLOXACIN
  5. ACYCLOVIR [Concomitant]
     Active Substance: ACYCLOVIR
  6. PREDNISOLONE-NEPAFENAC [Concomitant]

REACTIONS (6)
  - Eyelid pain [Unknown]
  - Dry eye [Unknown]
  - Photophobia [Unknown]
  - Fatigue [Unknown]
  - Vitreous floaters [Unknown]
  - Off label use [Unknown]
